FAERS Safety Report 5903396-4 (Version None)
Quarter: 2008Q3

REPORT INFORMATION
  Report Type: 
  Country: None (occurrence: None)
  Receive Date: 20080930
  Receipt Date: 20080924
  Transmission Date: 20090109
  Serious: Yes (Other)
  Sender: FDA-Public Use
  Company Number: ES-MERCK-0801ESP00027

PATIENT
  Age: 68 Year
  Sex: Male

DRUGS (6)
  1. CANCIDAS [Suspect]
     Indication: CANDIDIASIS
     Route: 042
     Dates: start: 20080101, end: 20080124
  2. CANCIDAS [Suspect]
     Route: 042
     Dates: start: 20080124, end: 20080128
  3. CANCIDAS [Suspect]
     Indication: CANDIDA SEPSIS
     Route: 042
     Dates: start: 20080101, end: 20080124
  4. CANCIDAS [Suspect]
     Route: 042
     Dates: start: 20080124, end: 20080128
  5. [THERAPY UNSPECIFIED] [Concomitant]
     Route: 065
  6. ANTIMICROBIAL (UNSPECIFIED) [Concomitant]
     Route: 065
     Dates: end: 20080101

REACTIONS (4)
  - PANCYTOPENIA [None]
  - PLATELET COUNT DECREASED [None]
  - RED BLOOD CELL COUNT DECREASED [None]
  - WHITE BLOOD CELL COUNT DECREASED [None]
